FAERS Safety Report 9313615 (Version 1)
Quarter: 2013Q2

REPORT INFORMATION
  Report Type: Spontaneous
  Country: US (occurrence: US)
  Receive Date: 20130528
  Receipt Date: 20130528
  Transmission Date: 20140414
  Serious: Yes (Hospitalization, Other)
  Sender: FDA-Public Use
  Company Number: US-UCBSA-086579

PATIENT
  Sex: Female

DRUGS (1)
  1. VIMPAT [Suspect]
     Indication: PAIN
     Dosage: MORNING AND NIGHT

REACTIONS (5)
  - Hospitalisation [Unknown]
  - Local swelling [Unknown]
  - Tremor [Unknown]
  - Dyspnoea [Unknown]
  - Palpitations [Unknown]
